FAERS Safety Report 5165278-8 (Version None)
Quarter: 2006Q4

REPORT INFORMATION
  Report Type: 
  Country: None (occurrence: None)
  Receive Date: 20061124
  Receipt Date: 20061113
  Transmission Date: 20070319
  Serious: Yes (Other)
  Sender: FDA-Public Use
  Company Number: 2006142120

PATIENT
  Age: 36 Year
  Sex: Female

DRUGS (4)
  1. LYRICA [Suspect]
     Indication: FACIAL NEURALGIA
     Dosage: 150 MG (75 MG, 2 IN 1 D)
     Dates: start: 20060801
  2. INSULIN LISPRO (INSULIN LISPRO) [Concomitant]
  3. LIBRAX [Concomitant]
  4. DUSPATALIN ^DUPHAR^ (MEBEVERINE HYDROCHLORIDE) [Concomitant]

REACTIONS (6)
  - DRUG INEFFECTIVE [None]
  - IMMUNOSUPPRESSION [None]
  - LEUKOPENIA [None]
  - ORAL CANDIDIASIS [None]
  - THROMBOCYTOPENIA [None]
  - URINARY TRACT INFECTION [None]
